FAERS Safety Report 17145613 (Version 1)
Quarter: 2019Q4

REPORT INFORMATION
  Report Type: Spontaneous
  Country: US (occurrence: US)
  Receive Date: 20191212
  Receipt Date: 20191212
  Transmission Date: 20200122
  Serious: No
  Sender: FDA-Public Use
  Company Number: US-CUMBERLAND-2019-US-000013

PATIENT
  Age: 54 Year
  Sex: Female

DRUGS (2)
  1. CALDOLOR [Suspect]
     Active Substance: IBUPROFEN
     Route: 042
  2. LACTATED RINGERS SOLUTION [Concomitant]
     Active Substance: CALCIUM CHLORIDE\POTASSIUM CHLORIDE\SODIUM CHLORIDE\SODIUM LACTATE

REACTIONS (1)
  - Application site rash [Recovered/Resolved]
